FAERS Safety Report 7595451-0 (Version None)
Quarter: 2011Q3

REPORT INFORMATION
  Report Type: 
  Country: None (occurrence: None)
  Receive Date: 20110707
  Receipt Date: 20110701
  Transmission Date: 20111222
  Serious: Yes (Hospitalization)
  Sender: FDA-Public Use
  Company Number: FR-ROCHE-787175

PATIENT
  Sex: Female

DRUGS (7)
  1. NAPROXEN [Suspect]
     Route: 048
  2. COLTRAMYL [Suspect]
     Route: 048
  3. DEBRIDAT [Suspect]
     Route: 048
  4. IMODIUM [Suspect]
     Route: 048
  5. ACETAMINOPHEN W/ PROPOXYPHENE HCL [Suspect]
     Route: 048
  6. DESLORATADINE [Suspect]
     Route: 048
  7. MOTILIUM [Suspect]
     Route: 048

REACTIONS (2)
  - SOMNOLENCE [None]
  - POISONING [None]
